FAERS Safety Report 13053790 (Version 2)
Quarter: 2017Q1

REPORT INFORMATION
  Report Type: Report from Study
  Country: SA (occurrence: SA)
  Receive Date: 20161222
  Receipt Date: 20170207
  Transmission Date: 20170428
  Serious: Yes (Other)
  Sender: FDA-Public Use
  Company Number: SA-ROCHE-1871160

PATIENT

DRUGS (2)
  1. RIBAVIRIN. [Suspect]
     Active Substance: RIBAVIRIN
     Indication: CHRONIC HEPATITIS C
     Route: 065
  2. OMBITASVIR/PARITAPREVIR/RITONAVIR [Suspect]
     Active Substance: OMBITASVIR\PARITAPREVIR\RITONAVIR
     Indication: CHRONIC HEPATITIS C
     Route: 065

REACTIONS (1)
  - Hepatic failure [Recovered/Resolved]
